FAERS Safety Report 16492237 (Version 3)
Quarter: 2019Q3

REPORT INFORMATION
  Report Type: Report from Study
  Country: US (occurrence: US)
  Receive Date: 20190628
  Receipt Date: 20190719
  Transmission Date: 20191004
  Serious: Yes (Hospitalization, Other)
  Sender: FDA-Public Use
  Company Number: US-GILEAD-2019-0415783

PATIENT
  Age: 3 Year
  Sex: Male
  Weight: 14.4 kg

DRUGS (13)
  1. AMBRISENTAN [Suspect]
     Active Substance: AMBRISENTAN
     Indication: HYPOPLASTIC LEFT HEART SYNDROME
  2. ASPIRIN (E.C.) [Concomitant]
     Active Substance: ASPIRIN
  3. ALDACTONE 50 HCT [Concomitant]
  4. REVATIO [Concomitant]
     Active Substance: SILDENAFIL CITRATE
  5. SILDENAFIL. [Concomitant]
     Active Substance: SILDENAFIL
  6. MOTRIN CHILDREN [Concomitant]
     Active Substance: IBUPROFEN
  7. HYDROCODONE/ACETAMINOPHEN [Concomitant]
     Active Substance: ACETAMINOPHEN\HYDROCODONE
  8. DIURIL [CHLOROTHIAZIDE SODIUM] [Concomitant]
  9. MIRALAX [Concomitant]
     Active Substance: POLYETHYLENE GLYCOL 3350
  10. CLARITIN [CLARITHROMYCIN] [Concomitant]
     Active Substance: CLARITHROMYCIN
  11. AMBRISENTAN [Suspect]
     Active Substance: AMBRISENTAN
     Indication: PULMONARY HYPERTENSION
     Dosage: 5 MG, QD
     Route: 048
     Dates: start: 20190403, end: 20190602
  12. LASIX + K [Concomitant]
     Active Substance: FUROSEMIDE\POTASSIUM CHLORIDE
  13. FLONASE [MOMETASONE FUROATE] [Concomitant]
     Active Substance: MOMETASONE FUROATE

REACTIONS (3)
  - Off label use [Recovered/Resolved]
  - Pulmonary oedema [Unknown]
  - Pleural effusion [Unknown]

NARRATIVE: CASE EVENT DATE: 20190403
